FAERS Safety Report 4696041-X (Version None)
Quarter: 2005Q2

REPORT INFORMATION
  Report Type: 
  Country: None (occurrence: None)
  Receive Date: 20050621
  Receipt Date: 20050620
  Transmission Date: 20051028
  Serious: Yes (Hospitalization)
  Sender: FDA-Public Use
  Company Number: FR-GLAXOSMITHKLINE-B0385032A

PATIENT
  Age: 79 Year
  Sex: Female

DRUGS (6)
  1. AMOXICILLIN [Suspect]
     Indication: DUODENAL ULCER
     Dosage: 3G PER DAY
     Route: 048
     Dates: start: 20050323, end: 20050329
  2. AUGMENTIN '125' [Suspect]
     Dosage: 3G PER DAY
     Route: 042
     Dates: start: 20050317, end: 20050321
  3. ZECLAR [Suspect]
     Indication: DUODENAL ULCER
     Dosage: 1G PER DAY
     Route: 048
     Dates: start: 20050323, end: 20050329
  4. OFLOCET [Concomitant]
     Route: 065
  5. FLAGYL [Concomitant]
     Route: 065
  6. LEVOTHYROX [Concomitant]
     Indication: BASEDOW'S DISEASE
     Route: 065

REACTIONS (6)
  - CLOSTRIDIAL INFECTION [None]
  - CLOSTRIDIUM COLITIS [None]
  - COLITIS ULCERATIVE [None]
  - DIARRHOEA [None]
  - GENERAL PHYSICAL HEALTH DETERIORATION [None]
  - LEUKOCYTOSIS [None]
